FAERS Safety Report 4838213-7 (Version None)
Quarter: 2005Q4

REPORT INFORMATION
  Report Type: 
  Country: None (occurrence: None)
  Receive Date: 20051123
  Receipt Date: 20051109
  Transmission Date: 20060501
  Serious: Yes (Life-Threatening, Hospitalization)
  Sender: FDA-Public Use
  Company Number: 2005-02146

PATIENT
  Age: 69 Year
  Sex: Female
  Weight: 70 kg

DRUGS (13)
  1. VELCADE [Suspect]
     Indication: MULTIPLE MYELOMA
     Dosage: SEE IMAGE
     Route: 042
     Dates: start: 20050923, end: 20051003
  2. VELCADE [Suspect]
     Indication: MULTIPLE MYELOMA
     Dosage: SEE IMAGE
     Route: 042
     Dates: start: 20050808
  3. DOXIL [Suspect]
     Indication: MULTIPLE MYELOMA
     Dosage: SEE IMAGE
     Route: 042
     Dates: start: 20050923, end: 20050926
  4. DOXIL [Suspect]
     Indication: MULTIPLE MYELOMA
     Dosage: SEE IMAGE
     Route: 042
     Dates: start: 20050811
  5. CAPTOPRIL [Concomitant]
  6. LEVOTHYROXINE SODIUM [Concomitant]
  7. INDAPAMIDE [Concomitant]
  8. SOTALOL HCL [Concomitant]
  9. TIANEPTINE (TIANEPTINE) [Concomitant]
  10. KETOPROFEN [Concomitant]
  11. RANITIDINE (RANITIDNE) [Concomitant]
  12. ERYTHROPOIETIN (ERYTHROPOIETIN) [Concomitant]
  13. VITAMIN B6 [Concomitant]

REACTIONS (17)
  - AMNESIA [None]
  - BLOOD CALCIUM DECREASED [None]
  - BLOOD MAGNESIUM DECREASED [None]
  - BLOOD POTASSIUM DECREASED [None]
  - CEREBRAL ISCHAEMIA [None]
  - COORDINATION ABNORMAL [None]
  - DEPRESSED LEVEL OF CONSCIOUSNESS [None]
  - DIARRHOEA [None]
  - HYPERTENSION [None]
  - ILEUS [None]
  - PALMAR-PLANTAR ERYTHRODYSAESTHESIA SYNDROME [None]
  - PERIPHERAL SENSORY NEUROPATHY [None]
  - RESTLESSNESS [None]
  - SOMNOLENCE [None]
  - THERAPY NON-RESPONDER [None]
  - THROMBOCYTOPENIA [None]
  - VOMITING [None]
